FAERS Safety Report 24778561 (Version 2)
Quarter: 2025Q1

REPORT INFORMATION
  Report Type: Spontaneous
  Country: US (occurrence: US)
  Receive Date: 20241226
  Receipt Date: 20250301
  Transmission Date: 20250408
  Serious: Yes (Hospitalization)
  Sender: SANOFI AVENTIS
  Company Number: US-SA-2024SA379749

PATIENT
  Age: 68 Year
  Sex: Female

DRUGS (23)
  1. REZUROCK [Suspect]
     Active Substance: BELUMOSUDIL
     Indication: Graft versus host disease
     Dosage: 200 MG, QD
     Route: 048
     Dates: start: 202410
  2. ACYCLOVIR [Concomitant]
     Active Substance: ACYCLOVIR
  3. BACTRIM [Concomitant]
     Active Substance: SULFAMETHOXAZOLE\TRIMETHOPRIM
  4. BASAGLAR [Concomitant]
     Active Substance: INSULIN GLARGINE
  5. COREG [Concomitant]
     Active Substance: CARVEDILOL
  6. ENTECAVIR [Concomitant]
     Active Substance: ENTECAVIR
  7. FLOVENT [Concomitant]
     Active Substance: FLUTICASONE PROPIONATE
  8. GABAPENTIN [Concomitant]
     Active Substance: GABAPENTIN
  9. HUMALOG [Concomitant]
     Active Substance: INSULIN LISPRO
  10. JANUVIA [Concomitant]
     Active Substance: SITAGLIPTIN PHOSPHATE
  11. MACROBID [Concomitant]
     Active Substance: NITROFURANTOIN\NITROFURANTOIN MONOHYDRATE
  12. METFORMIN [Concomitant]
     Active Substance: METFORMIN HYDROCHLORIDE
  13. MONTELUKAST [Concomitant]
     Active Substance: MONTELUKAST
  14. NOXAFIL [Concomitant]
     Active Substance: POSACONAZOLE
  15. ONDANSETRON [Concomitant]
     Active Substance: ONDANSETRON
  16. PREDNISONE [Concomitant]
     Active Substance: PREDNISONE
  17. PREVYMIS [Concomitant]
     Active Substance: LETERMOVIR
  18. PROTONIX [Concomitant]
     Active Substance: PANTOPRAZOLE SODIUM
  19. ROSUVASTATIN [Concomitant]
     Active Substance: ROSUVASTATIN
  20. VITAMIN C [Concomitant]
     Active Substance: ASCORBIC ACID
  21. JARDIANCE [Concomitant]
     Active Substance: EMPAGLIFLOZIN
  22. MYRBETRIQ [Concomitant]
     Active Substance: MIRABEGRON
  23. PROAIR HFA [Concomitant]
     Active Substance: ALBUTEROL SULFATE

REACTIONS (4)
  - Hospitalisation [Unknown]
  - Diarrhoea [Unknown]
  - Nausea [Unknown]
  - Inappropriate schedule of product administration [Unknown]

NARRATIVE: CASE EVENT DATE: 20240101
